FAERS Safety Report 8465511 (Version 2)
Quarter: 2013Q3

REPORT INFORMATION
  Report Type: Spontaneous
  Country: US (occurrence: US)
  Receive Date: 20120319
  Receipt Date: 20130926
  Transmission Date: 20140515
  Serious: Yes (Hospitalization)
  Sender: FDA-Public Use
  Company Number: US-GLAXOSMITHKLINE-A0896382A

PATIENT
  Age: 54 Year
  Sex: Male
  Weight: 106.8 kg

DRUGS (5)
  1. AVANDIA [Suspect]
     Indication: DIABETES MELLITUS
     Dosage: 4MG PER DAY
     Route: 048
     Dates: start: 20090101, end: 20100417
  2. CIALIS [Concomitant]
  3. CELEXA [Concomitant]
  4. INSULIN [Concomitant]
  5. PRAVACHOL [Concomitant]

REACTIONS (5)
  - Cerebrovascular accident [Unknown]
  - Cardiac disorder [Unknown]
  - Transient ischaemic attack [Unknown]
  - Cardiovascular disorder [Unknown]
  - Cerebral infarction [Unknown]
